FAERS Safety Report 6764122-2 (Version None)
Quarter: 2010Q2

REPORT INFORMATION
  Report Type: 
  Country: None (occurrence: None)
  Receive Date: 20100610
  Receipt Date: 20100604
  Transmission Date: 20101027
  Serious: Yes (Disabling)
  Sender: FDA-Public Use
  Company Number: A0749879A

PATIENT
  Age: 75 Year
  Sex: Female

DRUGS (8)
  1. ADVAIR DISKUS 100/50 [Suspect]
     Indication: CHRONIC OBSTRUCTIVE PULMONARY DISEASE
     Dosage: 1PUFF TWICE PER DAY
     Route: 055
     Dates: start: 20060501, end: 20080301
  2. PRILOSEC [Concomitant]
     Route: 048
  3. VERAPAMIL [Concomitant]
     Route: 048
  4. AVAPRO [Concomitant]
  5. PAROXETINE HCL [Concomitant]
     Route: 048
  6. PROTONIX [Concomitant]
  7. NORVASC [Concomitant]
  8. SPIRIVA [Concomitant]
     Dates: start: 20060501

REACTIONS (20)
  - ANXIETY [None]
  - BONE DISORDER [None]
  - DENTAL CARIES [None]
  - DENTURE WEARER [None]
  - DEPRESSION [None]
  - DRY MOUTH [None]
  - DYSPNOEA [None]
  - EMOTIONAL DISTRESS [None]
  - FATIGUE [None]
  - HERPES ZOSTER [None]
  - INFECTION [None]
  - ORAL SURGERY [None]
  - PAIN [None]
  - STRESS [None]
  - TOOTH DISORDER [None]
  - TOOTH EROSION [None]
  - TOOTH EXTRACTION [None]
  - TOOTH FRACTURE [None]
  - TOOTH LOSS [None]
  - WEIGHT INCREASED [None]
